FAERS Safety Report 20161335 (Version 1)
Quarter: 2021Q4

REPORT INFORMATION
  Report Type: Spontaneous
  Country: US (occurrence: None)
  Receive Date: 20211207
  Receipt Date: 20211207
  Transmission Date: 20220303
  Serious: Yes (Disabling)
  Sender: FDA-Public Use
  Company Number: None

PATIENT
  Age: 29 Year
  Sex: Female

DRUGS (2)
  1. SYNTHROID [Suspect]
     Active Substance: LEVOTHYROXINE SODIUM
     Indication: Autoimmune thyroiditis
     Dosage: OTHER QUANTITY : 1 TABLET(S);?
     Route: 048
  2. SYNTHROID [Suspect]
     Active Substance: LEVOTHYROXINE SODIUM
     Indication: Hypothyroidism

REACTIONS (12)
  - Fatigue [None]
  - Feeling abnormal [None]
  - Social problem [None]
  - Migraine [None]
  - Malaise [None]
  - Sluggishness [None]
  - Exercise tolerance decreased [None]
  - Suicidal ideation [None]
  - Impaired work ability [None]
  - Decreased activity [None]
  - Accidental overdose [None]
  - Product prescribing error [None]
